FAERS Safety Report 4597271-8 (Version None)
Quarter: 2005Q1

REPORT INFORMATION
  Report Type: 
  Country: None (occurrence: None)
  Receive Date: 20050301
  Receipt Date: 20050215
  Transmission Date: 20050727
  Serious: Yes (Death)
  Sender: FDA-Public Use
  Company Number: RENA-11250

PATIENT
  Age: 71 Year
  Sex: Female
  Weight: 50.4 kg

DRUGS (15)
  1. RENAGEL [Suspect]
     Indication: HYPERPHOSPHATAEMIA
     Dosage: 1.5 G DAILY PO
     Route: 048
     Dates: start: 20030805, end: 20041208
  2. ALLOPURINOL [Concomitant]
  3. MOBIC [Concomitant]
  4. TAKEPRON [Concomitant]
  5. BUFFERIN [Concomitant]
  6. GASMOTIN (MOSAPRIDE CITRATE) [Concomitant]
  7. MUCOSTA [Concomitant]
  8. CALTAN (CALCIUM CARBONATE) [Concomitant]
  9. BIOFERMIN [Concomitant]
  10. METROC (AMEZINIUM METILSULFATE) [Concomitant]
  11. ARGAMATE (CALCIUM POLYSTYRENE SULFONATE) [Concomitant]
  12. TANATRIL [Concomitant]
  13. BLOPRESS [Concomitant]
  14. CARDENALIN [Concomitant]
  15. ALOSENN [Concomitant]

REACTIONS (4)
  - DIVERTICULUM INTESTINAL [None]
  - ENDOTOXIC SHOCK [None]
  - LARGE INTESTINE PERFORATION [None]
  - PERITONITIS [None]
